FAERS Safety Report 15125382 (Version 1)
Quarter: 2018Q3

REPORT INFORMATION
  Report Type: Spontaneous
  Country: US (occurrence: US)
  Receive Date: 20180614
  Receipt Date: 20180614
  Transmission Date: 20181010
  Serious: Yes (Life-Threatening)
  Sender: FDA-Public Use
  Company Number: None

PATIENT
  Age: 74 Year
  Sex: Female
  Weight: 67.05 kg

DRUGS (2)
  1. ROSUVASTATIN. [Suspect]
     Active Substance: ROSUVASTATIN
     Indication: BLOOD CHOLESTEROL INCREASED
     Dosage: ?          QUANTITY:1 TABLET(S);?
     Route: 048
     Dates: start: 20180525, end: 20180530
  2. VALSARTAN. [Concomitant]
     Active Substance: VALSARTAN

REACTIONS (5)
  - Sneezing [None]
  - Chromaturia [None]
  - Cough [None]
  - Asthenia [None]
  - Vomiting [None]

NARRATIVE: CASE EVENT DATE: 20180528
